FAERS Safety Report 8921777 (Version 1)
Quarter: 2012Q4

REPORT INFORMATION
  Report Type: 
  Country: GB (occurrence: GB)
  Receive Date: 20121121
  Receipt Date: 20121121
  Transmission Date: 20130627
  Serious: Yes (Hospitalization, Other)
  Sender: FDA-Public Use
  Company Number: GB-PFIZER INC-2012286737

PATIENT
  Age: 45 Year
  Sex: Female
  Weight: 67.8 kg

DRUGS (4)
  1. LANSOPRAZOLE [Suspect]
     Dosage: UNK
     Route: 048
  2. VENLAFAXINE HYDROCHLORIDE [Suspect]
     Indication: DRUG USE FOR UNKNOWN INDICATION
     Dosage: 37.5 mg, 2x/day
     Route: 048
  3. REBIF [Suspect]
     Dosage: 44 ug three times weekly
     Route: 058
     Dates: start: 2007, end: 201204
  4. MODAFINIL [Suspect]
     Dosage: 75 mg, 2x/day
     Route: 048

REACTIONS (6)
  - Pancreatitis acute [Recovered/Resolved with Sequelae]
  - Pancreatitis chronic [Recovering/Resolving]
  - Gamma-glutamyltransferase increased [Unknown]
  - Aspartate aminotransferase increased [Unknown]
  - Alanine aminotransferase increased [Unknown]
  - Drug interaction [Unknown]
